FAERS Safety Report 8529806-4 (Version None)
Quarter: 2012Q3

REPORT INFORMATION
  Report Type: 
  Country: None (occurrence: None)
  Receive Date: 20120723
  Receipt Date: 20120711
  Transmission Date: 20120928
  Serious: Yes (Hospitalization)
  Sender: FDA-Public Use
  Company Number: JP-JNJFOC-20120707991

PATIENT
  Age: 8 Decade
  Sex: Female

DRUGS (6)
  1. NALTREXONE HYDROCHLORIDE [Interacting]
     Indication: PRODUCT USED FOR UNKNOWN INDICATION
     Route: 065
  2. FENTANYL-100 [Suspect]
     Indication: CANCER PAIN
     Route: 062
  3. FENTANYL-100 [Suspect]
     Route: 062
  4. FENTANYL-100 [Suspect]
     Dosage: ON 23-NOV ON AN UNSPECIFIED YEAR DOSE WAS INCREASED TO 75 UG/HR
     Route: 062
  5. UNKNOWN MEDICATION [Concomitant]
     Indication: PRODUCT USED FOR UNKNOWN INDICATION
     Route: 065
  6. FENTOS TAPE [Suspect]
     Indication: PRODUCT USED FOR UNKNOWN INDICATION
     Dosage: ON HOSPITAL DAY 2 DRUG WAS SWITCHED TO FENTOS TAPE AND ON DAY 6 THE FENTOS TAPE WAS DISCONTINUED
     Route: 065

REACTIONS (4)
  - OVERDOSE [None]
  - DRUG INTERACTION [None]
  - SOMNOLENCE [None]
  - INADEQUATE ANALGESIA [None]
